FAERS Safety Report 18312561 (Version 1)
Quarter: 2020Q3

REPORT INFORMATION
  Report Type: Report from Study
  Country: CA (occurrence: CA)
  Receive Date: 20200925
  Receipt Date: 20200925
  Transmission Date: 20201103
  Serious: Yes (Other)
  Sender: FDA-Public Use
  Company Number: PHHY2019CA177204

PATIENT
  Age: 81 Year
  Sex: Female

DRUGS (1)
  1. GILENYA [Suspect]
     Active Substance: FINGOLIMOD HYDROCHLORIDE
     Indication: PRODUCT USED FOR UNKNOWN INDICATION
     Dosage: UNK
     Route: 048
     Dates: start: 20131018, end: 202008

REACTIONS (3)
  - Expanded disability status scale score increased [Unknown]
  - Diabetic neuropathy [Unknown]
  - Ataxia [Unknown]

NARRATIVE: CASE EVENT DATE: 20190726
